FAERS Safety Report 4810392-7 (Version None)
Quarter: 2005Q4

REPORT INFORMATION
  Report Type: 
  Country: None (occurrence: None)
  Receive Date: 20051024
  Receipt Date: 20051011
  Transmission Date: 20060501
  Serious: Yes (Disabling)
  Sender: FDA-Public Use
  Company Number: 218512

PATIENT
  Age: 70 Year
  Sex: Male
  Weight: 50 kg

DRUGS (10)
  1. RITUXAN [Suspect]
     Indication: NON-HODGKIN'S LYMPHOMA
     Dosage: 530 MG, QD,
     Dates: start: 20011005, end: 20020318
  2. CYCLOPHOSPHAMIDE [Suspect]
     Indication: NON-HODGKIN'S LYMPHOMA
     Dosage: 500 MG,
     Dates: start: 20011012, end: 20011211
  3. DOXORUBICIN HYDROCHLORIDE [Suspect]
     Indication: NON-HODGKIN'S LYMPHOMA
     Dosage: 30 MG,
     Dates: start: 20011012, end: 20011211
  4. VINCRISTINE [Suspect]
     Indication: NON-HODGKIN'S LYMPHOMA
     Dosage: 1 MG,
     Dates: start: 20011012, end: 20011211
  5. PREDNISONE [Suspect]
     Indication: NON-HODGKIN'S LYMPHOMA
     Dosage: 50 MG,
     Dates: start: 20011012, end: 20011213
  6. GRANISETRON  HCL [Suspect]
     Indication: NON-HODGKIN'S LYMPHOMA
     Dates: start: 20011012, end: 20020321
  7. ACETAMINOPHEN [Concomitant]
  8. CHLORPHENIRAMINE MALEATE [Concomitant]
  9. PANIPENEM (PANIPENEM) [Concomitant]
  10. BETAMIPRON (BETAMIPRON) [Concomitant]

REACTIONS (10)
  - BLOOD CREATINE INCREASED [None]
  - BLOOD LACTATE DEHYDROGENASE INCREASED [None]
  - BLOOD UREA INCREASED [None]
  - HAEMOGLOBIN DECREASED [None]
  - LYMPHOCYTE PERCENTAGE DECREASED [None]
  - LYMPHOCYTE PERCENTAGE INCREASED [None]
  - NEUTROPHIL PERCENTAGE DECREASED [None]
  - PLATELET COUNT DECREASED [None]
  - RED BLOOD CELL COUNT DECREASED [None]
  - WHITE BLOOD CELL COUNT DECREASED [None]
